FAERS Safety Report 9278894 (Version 2)
Quarter: 2013Q2

REPORT INFORMATION
  Report Type: Spontaneous
  Country: BR (occurrence: BR)
  Receive Date: 20130508
  Receipt Date: 20130605
  Transmission Date: 20140414
  Serious: Yes (Other)
  Sender: FDA-Public Use
  Company Number: PHHY2013BR044182

PATIENT
  Sex: Female
  Weight: 80 kg

DRUGS (4)
  1. HIGROTON [Suspect]
     Indication: HYPERTENSION
     Dosage: 0.5 DF, QOD
     Route: 048
  2. LOSARTAN [Suspect]
     Indication: HYPERTENSION
     Dosage: 2 DF (50MG), DAILY
     Route: 048
  3. SIMVASTATIN [Suspect]
     Indication: BLOOD CHOLESTEROL ABNORMAL
     Dosage: 1 DF, QHS
     Route: 048
  4. INDAPEN//INDAPAMIDE [Suspect]
     Indication: HYPERTENSION
     Dosage: 1 DF (1.5MG), DAILY
     Route: 048

REACTIONS (2)
  - Glucose tolerance impaired [Not Recovered/Not Resolved]
  - Wrong technique in drug usage process [Unknown]
